FAERS Safety Report 5657710-8 (Version None)
Quarter: 2008Q1

REPORT INFORMATION
  Report Type: 
  Country: None (occurrence: None)
  Receive Date: 20080310
  Receipt Date: 20080304
  Transmission Date: 20080703
  Serious: Yes (Other)
  Sender: FDA-Public Use
  Company Number: BW-BOEHRINGER INGELHEIM GMBH, GERMANY-2006-BP-14138BP

PATIENT
  Age: 27 Year
  Sex: Female

DRUGS (4)
  1. VIRAMUNE [Suspect]
     Indication: HIV INFECTION
     Route: 048
     Dates: start: 20051025, end: 20051208
  2. VIRAMUNE [Suspect]
     Route: 048
     Dates: start: 20051007, end: 20051025
  3. SUSTIVA [Suspect]
     Indication: HIV INFECTION
     Route: 048
     Dates: start: 20051208
  4. SUSTIVA [Suspect]
     Route: 048
     Dates: start: 20050124, end: 20051007

REACTIONS (1)
  - ABORTION SPONTANEOUS [None]
